FAERS Safety Report 12350651 (Version 1)
Quarter: 2016Q2

REPORT INFORMATION
  Report Type: Report from Study
  Country: US (occurrence: US)
  Receive Date: 20160510
  Receipt Date: 20160510
  Transmission Date: 20160815
  Serious: No
  Sender: FDA-Public Use
  Company Number: PHEH2016US011315

PATIENT
  Age: 63 Year
  Sex: Male

DRUGS (1)
  1. VOTRIENT [Suspect]
     Active Substance: PAZOPANIB HYDROCHLORIDE
     Indication: HEPATIC ENZYME INCREASED
     Route: 065
     Dates: start: 20160308, end: 20160501

REACTIONS (2)
  - Hepatic enzyme increased [Unknown]
  - Product use issue [Unknown]

NARRATIVE: CASE EVENT DATE: 20160308
